FAERS Safety Report 20146133 (Version 1)
Quarter: 2021Q4

REPORT INFORMATION
  Report Type: Spontaneous
  Country: US (occurrence: None)
  Receive Date: 20211203
  Receipt Date: 20211203
  Transmission Date: 20220303
  Serious: Yes (Death)
  Sender: FDA-Public Use
  Company Number: None

PATIENT
  Age: 74 Year
  Sex: Female

DRUGS (11)
  1. MEKINIST [Suspect]
     Active Substance: TRAMETINIB DIMETHYL SULFOXIDE
     Indication: Lung carcinoma cell type unspecified stage 0
     Dosage: FREQUENCY : DAILY;?
     Route: 048
     Dates: start: 20210211, end: 20211124
  2. ANORO ELLIPT AER [Concomitant]
  3. CALCIUM TAB/VIT D3 [Concomitant]
  4. MULTIVITAMIN ADULT 50+ [Concomitant]
  5. VITAMIN B COMPLEX TAB [Concomitant]
  6. ELIQUIS [Concomitant]
     Active Substance: APIXABAN
  7. HYDROXYUREA CAP [Concomitant]
  8. LASIX [Concomitant]
     Active Substance: FUROSEMIDE
  9. LIPOFLAVON TAB [Concomitant]
  10. APPLE CIDER VINEGAR TAB [Concomitant]
  11. CRANBERRY TABS [Concomitant]

REACTIONS (1)
  - Lung neoplasm malignant [None]

NARRATIVE: CASE EVENT DATE: 20211124
